FAERS Safety Report 8030815-2 (Version None)
Quarter: 2012Q1

REPORT INFORMATION
  Report Type: 
  Country: None (occurrence: None)
  Receive Date: 20120109
  Receipt Date: 20120106
  Transmission Date: 20120608
  Serious: Yes (Hospitalization, Other)
  Sender: FDA-Public Use
  Company Number: US-PFIZER INC-2012004932

PATIENT
  Sex: Male
  Weight: 85.26 kg

DRUGS (2)
  1. VITAMIN B-12 [Concomitant]
     Dosage: UNK
  2. LIPITOR [Suspect]
     Indication: BLOOD CHOLESTEROL INCREASED
     Dosage: UNK
     Dates: start: 20070101, end: 20111201

REACTIONS (5)
  - BLOOD CREATININE INCREASED [None]
  - RHABDOMYOLYSIS [None]
  - CORONARY ARTERY OCCLUSION [None]
  - GAIT DISTURBANCE [None]
  - OEDEMA PERIPHERAL [None]
